FAERS Safety Report 17495500 (Version 3)
Quarter: 2022Q1

REPORT INFORMATION
  Report Type: Report from Study
  Country: US (occurrence: US)
  Receive Date: 20200303
  Receipt Date: 20220202
  Transmission Date: 20220423
  Serious: Yes (Hospitalization, Other)
  Sender: FDA-Public Use
  Company Number: US-TAKEDA-2020TUS010126

PATIENT
  Sex: Male
  Weight: 83 kg

DRUGS (6)
  1. PONATINIB [Suspect]
     Active Substance: PONATINIB
     Indication: Acute lymphocytic leukaemia
     Dosage: 30 MILLIGRAM, QD
     Route: 048
     Dates: start: 202002
  2. CLOPIDOGREL [Concomitant]
     Active Substance: CLOPIDOGREL BISULFATE
     Dosage: UNK
  3. FUROSEMIDE [Concomitant]
     Active Substance: FUROSEMIDE
     Dosage: UNK
  4. METOPROLOL SUCCINATE [Concomitant]
     Active Substance: METOPROLOL SUCCINATE
     Dosage: UNK
  5. AMIODARONE [Concomitant]
     Active Substance: AMIODARONE
     Dosage: UNK
  6. ENTRESTO [Concomitant]
     Active Substance: SACUBITRIL\VALSARTAN
     Dosage: UNK

REACTIONS (5)
  - Blast cell crisis [Not Recovered/Not Resolved]
  - Haematocrit decreased [Unknown]
  - Haemoglobin decreased [Unknown]
  - Fluid retention [Unknown]
  - Rash [Unknown]
